FAERS Safety Report 5688753-6 (Version None)
Quarter: 2008Q1

REPORT INFORMATION
  Report Type: 
  Country: None (occurrence: None)
  Receive Date: 20080331
  Receipt Date: 20080318
  Transmission Date: 20080703
  Serious: Yes (Other)
  Sender: FDA-Public Use
  Company Number: US-AMGEN-QUU270366

PATIENT
  Sex: Male

DRUGS (3)
  1. ENBREL [Suspect]
     Indication: PSORIATIC ARTHROPATHY
     Route: 058
     Dates: start: 20021125
  2. ENBREL [Suspect]
     Indication: PSORIASIS
  3. REMICADE [Concomitant]

REACTIONS (2)
  - HEPATIC CIRRHOSIS [None]
  - PSORIASIS [None]
